FAERS Safety Report 14247326 (Version 1)
Quarter: 2017Q4

REPORT INFORMATION
  Report Type: Spontaneous
  Country: US (occurrence: US)
  Receive Date: 20171204
  Receipt Date: 20171204
  Transmission Date: 20180321
  Serious: No
  Sender: FDA-Public Use
  Company Number: US-ASTRAZENECA-2017SF16356

PATIENT

DRUGS (10)
  1. NOVOLOG [Concomitant]
     Active Substance: INSULIN ASPART
  2. VICTOZA [Concomitant]
     Active Substance: LIRAGLUTIDE
  3. INVOKANA [Concomitant]
     Active Substance: CANAGLIFLOZIN
  4. HUMALOG [Concomitant]
     Active Substance: INSULIN LISPRO
  5. METFORMIN [Concomitant]
     Active Substance: METFORMIN HYDROCHLORIDE
  6. EPERZAN [Concomitant]
     Active Substance: ALBIGLUTIDE
  7. TRESIBA [Concomitant]
     Active Substance: INSULIN DEGLUDEC
  8. LEVEMIR [Concomitant]
     Active Substance: INSULIN DETEMIR
  9. FARXIGA [Suspect]
     Active Substance: DAPAGLIFLOZIN PROPANEDIOL
     Route: 048
  10. TRAJENTA [Concomitant]
     Active Substance: LINAGLIPTIN

REACTIONS (1)
  - Glycosylated haemoglobin increased [Unknown]
